FAERS Safety Report 5504690-1 (Version None)
Quarter: 2007Q4

REPORT INFORMATION
  Report Type: 
  Country: None (occurrence: None)
  Receive Date: 20071030
  Receipt Date: 20070831
  Transmission Date: 20080405
  Serious: No
  Sender: FDA-Public Use
  Company Number: 267070

PATIENT
  Age: 59 Year
  Sex: Female

DRUGS (2)
  1. LEVEMIR [Suspect]
     Indication: INSULIN-REQUIRING TYPE II DIABETES MELLITUS
     Dosage: 52 U, QD, SUBCUTANEOUS
     Route: 058
  2. NOVOLOG [Suspect]
     Indication: INSULIN-REQUIRING TYPE II DIABETES MELLITUS
     Dosage: 20 U, TID, SUBCUTANEOUS
     Route: 058

REACTIONS (3)
  - BLOOD GLUCOSE DECREASED [None]
  - INJECTION SITE HAEMORRHAGE [None]
  - WEIGHT INCREASED [None]
